FAERS Safety Report 4762140-7 (Version None)
Quarter: 2005Q3

REPORT INFORMATION
  Report Type: 
  Country: None (occurrence: None)
  Receive Date: 20050906
  Receipt Date: 20050906
  Transmission Date: 20060218
  Serious: No
  Sender: FDA-Public Use
  Company Number: None

PATIENT

DRUGS (2)
  1. HEXTEND [Suspect]
     Dosage: INJECTABLE
  2. HEPARIN [Suspect]
     Dosage: INJECTABLE

REACTIONS (6)
  - ACTIVATED PARTIAL THROMBOPLASTIN TIME PROLONGED [None]
  - HAEMATOCRIT DECREASED [None]
  - HAEMORRHAGE [None]
  - HYPOTENSION [None]
  - MEDICATION ERROR [None]
  - WRONG DRUG ADMINISTERED [None]
